FAERS Safety Report 7044058-2 (Version None)
Quarter: 2010Q4

REPORT INFORMATION
  Report Type: 
  Country: None (occurrence: None)
  Receive Date: 20101013
  Receipt Date: 20101004
  Transmission Date: 20110411
  Serious: Yes (Other)
  Sender: FDA-Public Use
  Company Number: SE-PFIZER INC-2010125778

PATIENT
  Age: 55 Year
  Sex: Male

DRUGS (3)
  1. LYRICA [Suspect]
     Indication: PAIN
     Dosage: UNK
  2. LYRICA [Suspect]
     Indication: DEPRESSION
  3. LYRICA [Suspect]
     Indication: ANXIETY

REACTIONS (2)
  - DYSARTHRIA [None]
  - DYSPHEMIA [None]
